FAERS Safety Report 5957539-7 (Version None)
Quarter: 2008Q4

REPORT INFORMATION
  Report Type: 
  Country: None (occurrence: None)
  Receive Date: 20081114
  Receipt Date: 20081104
  Transmission Date: 20090506
  Serious: Yes (Death)
  Sender: FDA-Public Use
  Company Number: 1-16833001/MED-08211

PATIENT
  Age: 83 Year
  Sex: Female

DRUGS (1)
  1. ALLOPURINOL [Suspect]
     Dosage: 300 MG DAILY, ORAL
     Route: 048

REACTIONS (4)
  - ACUTE MYOCARDIAL INFARCTION [None]
  - CONJUNCTIVITIS [None]
  - DRUG RASH WITH EOSINOPHILIA AND SYSTEMIC SYMPTOMS [None]
  - MYOCARDITIS [None]
